FAERS Safety Report 23168125 (Version 2)
Quarter: 2025Q2

REPORT INFORMATION
  Report Type: Spontaneous
  Country: US (occurrence: US)
  Receive Date: 20231109
  Receipt Date: 20250513
  Transmission Date: 20250716
  Serious: Yes (Hospitalization, Other)
  Sender: ELI LILLY AND COMPANY
  Company Number: US-ELI_LILLY_AND_COMPANY-US202311003191

PATIENT
  Age: 51 Year
  Sex: Male
  Weight: 72.562 kg

DRUGS (29)
  1. TADALAFIL [Suspect]
     Active Substance: TADALAFIL
     Indication: Pulmonary arterial hypertension
     Dosage: 40 MG, DAILY
     Route: 048
     Dates: start: 20230804
  2. TADALAFIL [Suspect]
     Active Substance: TADALAFIL
     Dosage: 40 MG, DAILY
     Route: 048
  3. TREPROSTINIL SODIUM [Suspect]
     Active Substance: TREPROSTINIL SODIUM
     Indication: Pulmonary arterial hypertension
     Route: 058
     Dates: start: 20230126
  4. TREPROSTINIL SODIUM [Suspect]
     Active Substance: TREPROSTINIL SODIUM
     Route: 058
     Dates: start: 20250206
  5. ACETAMINOPHEN [Concomitant]
     Active Substance: ACETAMINOPHEN
     Indication: Product used for unknown indication
     Route: 048
     Dates: start: 20230818
  6. CODEINE [Concomitant]
     Active Substance: CODEINE
     Indication: Product used for unknown indication
     Route: 048
     Dates: start: 20230818
  7. FLUTICASONE [Concomitant]
     Active Substance: FLUTICASONE
     Indication: Product used for unknown indication
     Dosage: 50 UG, DAILY
     Route: 045
  8. CETIRIZINE HYDROCHLORIDE [Concomitant]
     Active Substance: CETIRIZINE HYDROCHLORIDE
     Indication: Product used for unknown indication
     Dosage: 1 DOSAGE FORM, DAILY
     Route: 048
  9. METFORMIN [Concomitant]
     Active Substance: METFORMIN HYDROCHLORIDE
     Indication: Product used for unknown indication
     Dosage: 1 DOSAGE FORM, BID
     Route: 048
  10. METOPROLOL TARTRATE [Concomitant]
     Active Substance: METOPROLOL TARTRATE
     Indication: Product used for unknown indication
  11. OPSUMIT [Concomitant]
     Active Substance: MACITENTAN
     Indication: Product used for unknown indication
     Dosage: 1 DOSAGE FORM, DAILY
  12. PANTOPRAZOLE [Concomitant]
     Active Substance: PANTOPRAZOLE
     Indication: Product used for unknown indication
     Dosage: 1 DOSAGE FORM, DAILY
     Route: 048
  13. POTASSIUM CHLORIDE [Concomitant]
     Active Substance: POTASSIUM CHLORIDE
     Indication: Product used for unknown indication
     Dosage: 2 DOSAGE FORM, BID
     Route: 048
  14. REMODULIN [Concomitant]
     Active Substance: TREPROSTINIL
     Indication: Pulmonary arterial hypertension
  15. REMODULIN [Concomitant]
     Active Substance: TREPROSTINIL
     Route: 058
  16. REMODULIN [Concomitant]
     Active Substance: TREPROSTINIL
  17. ROSUVASTATIN [Concomitant]
     Active Substance: ROSUVASTATIN
     Indication: Product used for unknown indication
     Dosage: 1 DOSAGE FORM, DAILY
     Route: 048
  18. SPIRONOLACTONE [Concomitant]
     Active Substance: SPIRONOLACTONE
     Indication: Product used for unknown indication
     Dosage: 1 DOSAGE FORM, DAILY
     Route: 048
  19. TORSEMIDE [Concomitant]
     Active Substance: TORSEMIDE
     Indication: Product used for unknown indication
     Dosage: 40 MG, BID
  20. TORSEMIDE [Concomitant]
     Active Substance: TORSEMIDE
     Dosage: 80 MG, BID
  21. TORSEMIDE [Concomitant]
     Active Substance: TORSEMIDE
     Dosage: 100 MG, BID
     Route: 048
  22. TREPROSTINIL [Concomitant]
     Active Substance: TREPROSTINIL
     Indication: Product used for unknown indication
  23. METOPROLOL [Concomitant]
     Active Substance: METOPROLOL
     Indication: Product used for unknown indication
     Route: 065
  24. METOPROLOL [Concomitant]
     Active Substance: METOPROLOL
     Dosage: 12.5 MG, BID
     Route: 065
  25. WINREVAIR [SOTATERCEPT] [Concomitant]
     Indication: Product used for unknown indication
     Route: 065
     Dates: start: 20240717
  26. MAGNESIUM OXIDE [Concomitant]
     Active Substance: MAGNESIUM OXIDE
     Indication: Product used for unknown indication
     Dosage: 1 DOSAGE FORM, BID
     Route: 048
  27. METOLAZONE [Concomitant]
     Active Substance: METOLAZONE
     Indication: Product used for unknown indication
     Dosage: 1 DOSAGE FORM, DAILY
     Route: 048
  28. MIDODRINE [Concomitant]
     Active Substance: MIDODRINE
     Indication: Product used for unknown indication
     Dosage: 3 DOSAGE FORM, TID
     Route: 048
  29. TYLENOL [Concomitant]
     Active Substance: ACETAMINOPHEN
     Indication: Product used for unknown indication
     Route: 048

REACTIONS (40)
  - Hyponatraemia [Unknown]
  - Hypokalaemia [Unknown]
  - Hypovolaemia [Unknown]
  - Cellulitis [Unknown]
  - Abscess [Unknown]
  - Pelvic inflammatory disease [Unknown]
  - Delirium [Unknown]
  - Acute kidney injury [Unknown]
  - Respiratory failure [Unknown]
  - Diarrhoea [Unknown]
  - Ventricular extrasystoles [Unknown]
  - Cardiac failure [Unknown]
  - Sinus tachycardia [Unknown]
  - Syncope [Recovered/Resolved]
  - Brain natriuretic peptide increased [Unknown]
  - Decreased appetite [Unknown]
  - Infusion site infection [Recovered/Resolved]
  - Infusion site abscess [Recovered/Resolved]
  - Infusion site pain [Unknown]
  - Fall [Unknown]
  - Joint injury [Unknown]
  - Weight increased [Unknown]
  - Fluid retention [Unknown]
  - Anxiety [Unknown]
  - Dehydration [Unknown]
  - Abdominal distension [Unknown]
  - Post procedural haemorrhage [Unknown]
  - Weight decreased [Unknown]
  - Ventricular extrasystoles [Unknown]
  - Chills [Unknown]
  - Muscle spasms [Unknown]
  - Nasal congestion [Unknown]
  - Hypotension [Unknown]
  - Abdominal discomfort [Unknown]
  - Asthenia [Unknown]
  - Nausea [Unknown]
  - Head discomfort [Recovered/Resolved]
  - Dyspnoea [Unknown]
  - Palpitations [Recovered/Resolved]
  - Epistaxis [Unknown]

NARRATIVE: CASE EVENT DATE: 20230101
